FAERS Safety Report 23784476 (Version 1)
Quarter: 2024Q2

REPORT INFORMATION
  Report Type: Report from Study
  Country: US (occurrence: US)
  Receive Date: 20240425
  Receipt Date: 20240425
  Transmission Date: 20240715
  Serious: Yes (Other)
  Sender: FDA-Public Use
  Company Number: US-002147023-NVSC2024US086828

PATIENT
  Age: 83 Year
  Sex: Male

DRUGS (1)
  1. ENTRESTO [Suspect]
     Active Substance: SACUBITRIL\VALSARTAN
     Indication: Product used for unknown indication
     Dosage: SACUBITRIL (49 MG) AND VALSARTAN (51 MG)
     Route: 048

REACTIONS (3)
  - Cerebrovascular accident [Unknown]
  - Thrombosis [Unknown]
  - Hypotension [Unknown]

NARRATIVE: CASE EVENT DATE: 20240417
